FAERS Safety Report 9508265 (Version 2)
Quarter: 2013Q3

REPORT INFORMATION
  Report Type: Spontaneous
  Country: US (occurrence: US)
  Receive Date: 20130909
  Receipt Date: 20130925
  Transmission Date: 20140515
  Serious: Yes (Other)
  Sender: FDA-Public Use
  Company Number: US-PFIZER INC-2013257425

PATIENT
  Age: 52 Year
  Sex: Female
  Weight: 82.99 kg

DRUGS (9)
  1. LYRICA [Suspect]
     Indication: FIBROMYALGIA
     Dosage: 100 MG (BY TAKING 2 CAPSULES OF 50MG), 2X/DAY
     Route: 048
     Dates: start: 201307
  2. ZANAFLEX [Concomitant]
     Indication: HYPOTONIA
     Dosage: UNK
  3. MORPHINE [Concomitant]
     Dosage: UNK
  4. CLARITIN [Concomitant]
     Indication: HYPERSENSITIVITY
     Dosage: UNK
  5. HYDROXYZINE [Concomitant]
     Dosage: UNK
  6. PRAVASTATIN [Concomitant]
     Dosage: UNK
  7. VITAMIN B COMPLEX [Concomitant]
     Indication: NUTRITIONAL SUPPLEMENTATION
     Dosage: UNK
  8. FOLIC ACID [Concomitant]
     Indication: NUTRITIONAL SUPPLEMENTATION
     Dosage: UNK
  9. VITAMIN D [Concomitant]
     Indication: NUTRITIONAL SUPPLEMENTATION
     Dosage: UNK

REACTIONS (3)
  - CSF pressure increased [Unknown]
  - Vision blurred [Unknown]
  - Visual impairment [Unknown]
